FAERS Safety Report 10274558 (Version 1)
Quarter: 2014Q3

REPORT INFORMATION
  Report Type: Spontaneous
  Country: US (occurrence: US)
  Receive Date: 20140702
  Receipt Date: 20140702
  Transmission Date: 20150326
  Serious: Yes (Other)
  Sender: FDA-Public Use
  Company Number: US-TEVA-491286USA

PATIENT
  Age: 55 Year
  Sex: Female

DRUGS (9)
  1. NAMENDA XR [Suspect]
     Active Substance: MEMANTINE HYDROCHLORIDE
     Dosage: 21 MILLIGRAM DAILY;
     Route: 048
     Dates: start: 2014, end: 201405
  2. KLONOPIN [Concomitant]
     Active Substance: CLONAZEPAM
     Indication: ANXIETY
  3. LAMOTRIGINE. [Concomitant]
     Active Substance: LAMOTRIGINE
  4. NAMENDA XR [Suspect]
     Active Substance: MEMANTINE HYDROCHLORIDE
     Indication: COGNITIVE DISORDER
     Dosage: 7 MILLIGRAM DAILY;
     Route: 048
     Dates: start: 201404, end: 201404
  5. BUPROPION [Concomitant]
     Active Substance: BUPROPION
     Indication: DEPRESSION
  6. NAMENDA XR [Suspect]
     Active Substance: MEMANTINE HYDROCHLORIDE
     Dosage: 14 MILLIGRAM DAILY;
     Route: 048
     Dates: start: 2014, end: 2014
  7. NAMENDA XR [Suspect]
     Active Substance: MEMANTINE HYDROCHLORIDE
     Dosage: 14 MILLIGRAM DAILY;
     Route: 048
     Dates: start: 20140529
  8. EXELON [Concomitant]
     Active Substance: RIVASTIGMINE TARTRATE
  9. NUVIGIL [Suspect]
     Active Substance: ARMODAFINIL
     Indication: DEPRESSED LEVEL OF CONSCIOUSNESS
     Dosage: 37.5 MILLIGRAM DAILY; 1/4 OF A 150 MG TABLET
     Dates: end: 201404

REACTIONS (7)
  - Thinking abnormal [Not Recovered/Not Resolved]
  - Incorrect dose administered [Unknown]
  - Restlessness [Not Recovered/Not Resolved]
  - Tachyphrenia [Recovered/Resolved]
  - Insomnia [Not Recovered/Not Resolved]
  - Off label use [Unknown]
  - Mental impairment [Recovered/Resolved]

NARRATIVE: CASE EVENT DATE: 201404
